APPROVED DRUG PRODUCT: AMOXICILLIN AND CLAVULANATE POTASSIUM
Active Ingredient: AMOXICILLIN; CLAVULANATE POTASSIUM
Strength: 400MG;EQ 57MG BASE
Dosage Form/Route: TABLET, CHEWABLE;ORAL
Application: A065161 | Product #002
Applicant: SUN PHARMACEUTICAL INDUSTRIES LTD
Approved: Dec 3, 2003 | RLD: No | RS: No | Type: DISCN